FAERS Safety Report 19429234 (Version 2)
Quarter: 2021Q2

REPORT INFORMATION
  Report Type: Spontaneous
  Country: IE (occurrence: IE)
  Receive Date: 20210617
  Receipt Date: 20210618
  Transmission Date: 20210717
  Serious: Yes (Hospitalization, Other)
  Sender: FDA-Public Use
  Company Number: IE-INFO-001257

PATIENT
  Age: 38 Year
  Sex: Male

DRUGS (3)
  1. TENOFOVIR ALAFENAMIDE/EMTRICITABINE/BICTEGRAVIR [Concomitant]
     Route: 065
  2. EMTRICITABINE, RILPIVIRINE/DOLUTEGRAVIR [Concomitant]
     Route: 065
  3. FLUCONAZOLE. [Suspect]
     Active Substance: FLUCONAZOLE
     Indication: MENINGITIS CRYPTOCOCCAL
     Dosage: FLUCONAZOLE 1200 MG WAS CONTINUED INITIALLY, THEN REDUCED TO 800 MG OD ON DAY 45
     Route: 065

REACTIONS (6)
  - Acute kidney injury [Unknown]
  - Nausea [Unknown]
  - Vomiting [Unknown]
  - Alopecia [Unknown]
  - Mucosal inflammation [Unknown]
  - Off label use [Unknown]
